FAERS Safety Report 7633962-X (Version None)
Quarter: 2011Q3

REPORT INFORMATION
  Report Type: 
  Country: None (occurrence: None)
  Receive Date: 20110725
  Receipt Date: 20110718
  Transmission Date: 20111222
  Serious: Yes (Other)
  Sender: FDA-Public Use
  Company Number: US-JNJFOC-20110512316

PATIENT
  Sex: Female

DRUGS (4)
  1. LEVAQUIN [Suspect]
     Route: 065
     Dates: start: 20090201
  2. LEVAQUIN [Suspect]
     Indication: RESPIRATORY TRACT INFECTION
     Route: 048
  3. LEVAQUIN [Suspect]
     Route: 065
     Dates: start: 20090201
  4. LEVAQUIN [Suspect]
     Indication: WOUND INFECTION
     Route: 048

REACTIONS (2)
  - TENDON RUPTURE [None]
  - TENOSYNOVITIS STENOSANS [None]
